FAERS Safety Report 8139356-5 (Version None)
Quarter: 2012Q1

REPORT INFORMATION
  Report Type: 
  Country: None (occurrence: None)
  Receive Date: 20120215
  Receipt Date: 20120213
  Transmission Date: 20120608
  Serious: Yes (Death, Other)
  Sender: FDA-Public Use
  Company Number: US-ELI_LILLY_AND_COMPANY-US201201004359

PATIENT
  Sex: Female
  Weight: 64.399 kg

DRUGS (14)
  1. NIFEDIPINE [Concomitant]
  2. MYCOPHENOLATE MOFETIL (CELLCEPT) [Concomitant]
  3. METFORMIN HCL [Concomitant]
  4. CALCIUM [Concomitant]
  5. LASIX [Concomitant]
  6. ALBUTEROL [Concomitant]
  7. CLARITIN [Concomitant]
  8. ATROVENT [Concomitant]
  9. COUMADIN [Concomitant]
  10. PROTONIX [Concomitant]
  11. NORCO [Concomitant]
  12. ADCIRCA [Suspect]
     Indication: PULMONARY HYPERTENSION
     Dosage: 40 MG, QD
     Dates: start: 20100501
  13. COZAAR [Concomitant]
  14. POTASSIUM CHLORIDE [Concomitant]

REACTIONS (3)
  - SEPTIC SHOCK [None]
  - DUODENAL PERFORATION [None]
  - ABDOMINAL PAIN [None]
